FAERS Safety Report 4627405-8 (Version None)
Quarter: 2005Q1

REPORT INFORMATION
  Report Type: 
  Country: None (occurrence: None)
  Receive Date: 20050331
  Receipt Date: 20050317
  Transmission Date: 20050727
  Serious: Yes (Death)
  Sender: FDA-Public Use
  Company Number: 2005S1000046

PATIENT
  Sex: Male

DRUGS (1)
  1. CUBICIN [Suspect]
     Dosage: IV
     Route: 042
     Dates: end: 20050301

REACTIONS (1)
  - DEATH [None]
